FAERS Safety Report 6133723-7 (Version None)
Quarter: 2009Q1

REPORT INFORMATION
  Report Type: 
  Country: None (occurrence: None)
  Receive Date: 20090326
  Receipt Date: 20090320
  Transmission Date: 20090719
  Serious: Yes (Other)
  Sender: FDA-Public Use
  Company Number: B0566682A

PATIENT
  Sex: Male

DRUGS (7)
  1. TELZIR [Suspect]
     Indication: HIV INFECTION
     Route: 048
     Dates: end: 20070427
  2. COMBIVIR [Suspect]
     Indication: HIV INFECTION
     Route: 048
  3. KIVEXA [Suspect]
     Indication: HIV INFECTION
     Route: 048
  4. EPIVIR [Suspect]
     Indication: HIV INFECTION
     Route: 048
  5. ZIAGEN [Suspect]
     Indication: HIV INFECTION
     Route: 048
  6. NORVIR [Suspect]
     Indication: HIV INFECTION
     Route: 048
  7. VIRAMUNE [Suspect]
     Indication: HIV INFECTION
     Route: 048

REACTIONS (2)
  - DYSLIPIDAEMIA [None]
  - HEPATOTOXICITY [None]
